FAERS Safety Report 20861039 (Version 2)
Quarter: 2022Q2

REPORT INFORMATION
  Report Type: Report from Study
  Country: CO (occurrence: CO)
  Receive Date: 20220523
  Receipt Date: 20220616
  Transmission Date: 20220721
  Serious: Yes (Hospitalization)
  Sender: FDA-Public Use
  Company Number: CO-JNJFOC-20220536410

PATIENT
  Age: 51 Year
  Sex: Male
  Weight: 53 kg

DRUGS (3)
  1. SIMPONI [Suspect]
     Active Substance: GOLIMUMAB
     Indication: Colitis ulcerative
     Route: 058
     Dates: start: 20220407
  2. SIMPONI [Suspect]
     Active Substance: GOLIMUMAB
     Dosage: LAST ADMINISTRATION WAS ON 22-MAY-2022
     Route: 058
  3. MESALAMINE [Concomitant]
     Active Substance: MESALAMINE
     Dates: end: 202205

REACTIONS (1)
  - Amoebiasis [Not Recovered/Not Resolved]

NARRATIVE: CASE EVENT DATE: 20220510
